FAERS Safety Report 8373778-2 (Version None)
Quarter: 2012Q2

REPORT INFORMATION
  Report Type: 
  Country: None (occurrence: None)
  Receive Date: 20120521
  Receipt Date: 20120514
  Transmission Date: 20120825
  Serious: Yes (Hospitalization)
  Sender: FDA-Public Use
  Company Number: PHHY2012FR041171

PATIENT
  Sex: Male
  Weight: 88 kg

DRUGS (1)
  1. VALSARTAN  AND HYDROCHLOROTHIAZIDE [Suspect]
     Indication: HYPERTENSION
     Dosage: UNK UKN, UNK
     Route: 048
     Dates: start: 19960101, end: 20111129

REACTIONS (7)
  - TONGUE OEDEMA [None]
  - INFLAMMATION [None]
  - PALATAL OEDEMA [None]
  - LUNG INFECTION [None]
  - RENAL FAILURE [None]
  - ANGIOEDEMA [None]
  - LIP OEDEMA [None]
